FAERS Safety Report 4602901-8 (Version None)
Quarter: 2005Q1

REPORT INFORMATION
  Report Type: 
  Country: None (occurrence: None)
  Receive Date: 20050309
  Receipt Date: 20050303
  Transmission Date: 20050727
  Serious: Yes (Hospitalization)
  Sender: FDA-Public Use
  Company Number: FR-GLAXOSMITHKLINE-B0373844A

PATIENT
  Age: 84 Year
  Sex: Male

DRUGS (6)
  1. AUGMENTIN '125' [Suspect]
     Indication: ILL-DEFINED DISORDER
     Dosage: 1G THREE TIMES PER DAY
     Route: 048
     Dates: start: 20050110, end: 20050118
  2. ZYLORIC [Suspect]
     Route: 048
  3. ATARAX [Suspect]
     Dosage: 10MG THREE TIMES PER DAY
     Route: 048
  4. LOVENOX [Suspect]
     Dosage: 4IU3 PER DAY
     Route: 058
     Dates: end: 20050119
  5. PLAVIX [Suspect]
     Dosage: 75MG PER DAY
     Route: 048
  6. BURINEX [Suspect]
     Route: 048
     Dates: end: 20050118

REACTIONS (15)
  - ACUTE GENERALISED EXANTHEMATOUS PUSTULOSIS [None]
  - DRUG RASH WITH EOSINOPHILIA AND SYSTEMIC SYMPTOMS [None]
  - ECZEMA [None]
  - ERYTHEMA [None]
  - EYELID OEDEMA [None]
  - FACE OEDEMA [None]
  - HYPERTROPHIC CARDIOMYOPATHY [None]
  - NEPHRITIS INTERSTITIAL [None]
  - RASH MACULO-PAPULAR [None]
  - RASH MORBILLIFORM [None]
  - RASH PUSTULAR [None]
  - RASH SCARLATINIFORM [None]
  - SKIN EXFOLIATION [None]
  - SKIN INFLAMMATION [None]
  - TOXIC SKIN ERUPTION [None]
